FAERS Safety Report 12504702 (Version 1)
Quarter: 2016Q2

REPORT INFORMATION
  Report Type: Spontaneous
  Country: US (occurrence: US)
  Receive Date: 20160628
  Receipt Date: 20160628
  Transmission Date: 20160815
  Serious: No
  Sender: FDA-Public Use
  Company Number: US-ASTRAZENECA-2016SE49011

PATIENT
  Age: 729 Month
  Sex: Female
  Weight: 83.9 kg

DRUGS (1)
  1. CRESTOR [Suspect]
     Active Substance: ROSUVASTATIN CALCIUM
     Indication: BLOOD CHOLESTEROL INCREASED
     Route: 048
     Dates: start: 20151119, end: 20160427

REACTIONS (6)
  - Myalgia [Recovering/Resolving]
  - Condition aggravated [Recovering/Resolving]
  - Arthralgia [Recovering/Resolving]
  - Abdominal discomfort [Recovering/Resolving]
  - Hypoaesthesia [Recovering/Resolving]
  - Muscular weakness [Recovering/Resolving]

NARRATIVE: CASE EVENT DATE: 201603
